FAERS Safety Report 11066838 (Version 2)
Quarter: 2015Q2

REPORT INFORMATION
  Report Type: Spontaneous
  Country: US (occurrence: US)
  Receive Date: 20150425
  Receipt Date: 20150525
  Transmission Date: 20150821
  Serious: Yes (Hospitalization)
  Sender: FDA-Public Use
  Company Number: US-JNJFOC-20131108571

PATIENT
  Age: 73 Year
  Sex: Female
  Weight: 75.75 kg

DRUGS (1)
  1. SIMPONI [Suspect]
     Active Substance: GOLIMUMAB
     Indication: RHEUMATOID ARTHRITIS
     Route: 058

REACTIONS (12)
  - Peripheral swelling [Not Recovered/Not Resolved]
  - Drug dose omission [Not Recovered/Not Resolved]
  - Feeling abnormal [Not Recovered/Not Resolved]
  - Application site induration [Unknown]
  - Animal bite [Recovered/Resolved]
  - Drug ineffective [Unknown]
  - Device malfunction [Recovered/Resolved]
  - Muscular weakness [Not Recovered/Not Resolved]
  - Wrong technique in drug usage process [Unknown]
  - Rheumatoid arthritis [Not Recovered/Not Resolved]
  - Device malfunction [Unknown]
  - Device malfunction [Unknown]

NARRATIVE: CASE EVENT DATE: 2009
